FAERS Safety Report 8593540 (Version 4)
Quarter: 2012Q4

REPORT INFORMATION
  Report Type: 
  Country: JP (occurrence: JP)
  Receive Date: 20120604
  Receipt Date: 20120921
  Transmission Date: 20130627
  Serious: Yes (Life-Threatening, Hospitalization, Other)
  Sender: FDA-Public Use
  Company Number: PHHY2012JP046719

PATIENT
  Sex: Female

DRUGS (4)
  1. NEORAL [Suspect]
     Indication: SYSTEMIC LUPUS ERYTHEMATOSUS
     Dosage: 150 mg, daily
     Route: 048
  2. ADRENOCORTICOTROPHIC HORMONE [Concomitant]
     Dosage: 30 mg, UNK
     Route: 048
  3. ADRENOCORTICOTROPHIC HORMONE [Concomitant]
     Dosage: 7 mg, UNK
     Route: 048
  4. CORTICOSTEROIDS [Concomitant]
     Dosage: 20 mg, UNK

REACTIONS (12)
  - Cardiac failure [Recovered/Resolved]
  - Loss of consciousness [Unknown]
  - Oedema [Recovered/Resolved]
  - Weight increased [Unknown]
  - Renal failure [Recovered/Resolved]
  - Protein urine present [Recovering/Resolving]
  - Blood urea increased [Unknown]
  - Necrotising fasciitis [Recovered/Resolved]
  - Arthritis bacterial [Recovered/Resolved]
  - Gait disturbance [Unknown]
  - Muscular weakness [Unknown]
  - Hyperglycaemia [Unknown]
